FAERS Safety Report 24710601 (Version 1)
Quarter: 2024Q4

REPORT INFORMATION
  Report Type: Other
  Country: CN (occurrence: CN)
  Receive Date: 20241209
  Receipt Date: 20241209
  Transmission Date: 20250115
  Serious: Yes (Life-Threatening, Other)
  Sender: Kanchan Healthcare
  Company Number: CN-Kanchan Healthcare INC-2166735

PATIENT
  Age: 59 Year
  Sex: Female

DRUGS (10)
  1. DEXAMETHASONE [Suspect]
     Active Substance: DEXAMETHASONE
     Indication: Plasma cell myeloma
  2. DEXAMETHASONE [Suspect]
     Active Substance: DEXAMETHASONE
     Indication: Plasma cell myeloma
  3. BORTEZOMIB [Suspect]
     Active Substance: BORTEZOMIB
  4. CALCIUM CARBONATE [Concomitant]
     Active Substance: CALCIUM CARBONATE
  5. ZOLEDRONIC ACID [Concomitant]
     Active Substance: ZOLEDRONIC ACID
  6. ASPIRIN [Concomitant]
     Active Substance: ASPIRIN
  7. LENALIDOMIDE [Concomitant]
     Active Substance: LENALIDOMIDE
  8. ETOPOSIDE [Suspect]
     Active Substance: ETOPOSIDE
  9. MITOXANTRONE HYDROCHLORIDE [Suspect]
     Active Substance: MITOXANTRONE HYDROCHLORIDE
  10. TUCIDINOSTAT [Suspect]
     Active Substance: TUCIDINOSTAT

REACTIONS (4)
  - Myelosuppression [Recovered/Resolved]
  - Product use in unapproved indication [Unknown]
  - Haematotoxicity [Recovered/Resolved]
  - Febrile neutropenia [Recovered/Resolved]
